FAERS Safety Report 5869529-3 (Version None)
Quarter: 2008Q3

REPORT INFORMATION
  Report Type: 
  Country: None (occurrence: None)
  Receive Date: 20080828
  Receipt Date: 20080820
  Transmission Date: 20090109
  Serious: Yes (Death, Hospitalization)
  Sender: FDA-Public Use
  Company Number: 15563

PATIENT
  Age: 65 Year
  Sex: Female

DRUGS (14)
  1. CYTARABINE [Suspect]
     Indication: ACUTE MYELOID LEUKAEMIA
     Dosage: 20 MG/M2 DAILY SC
     Route: 058
     Dates: start: 20061102
  2. CYTARABINE [Suspect]
     Indication: ACUTE MYELOID LEUKAEMIA
     Dates: start: 20061204
  3. NYSTATIN [Concomitant]
  4. RIFATAR [Concomitant]
  5. ETHAMBUTOL HCL [Concomitant]
  6. VITAMIN B6 [Concomitant]
  7. DOMPERIDONE [Concomitant]
  8. PYRIDOXINE HYDROCHLORIDE [Concomitant]
  9. SENNOSIDE [Concomitant]
  10. METFORMIN HCL [Concomitant]
  11. INDOMETHACIN [Concomitant]
  12. ISONIAZID [Concomitant]
  13. RIFAMPICIN [Concomitant]
  14. DEXAMETHASONE [Concomitant]

REACTIONS (24)
  - ANGIOEDEMA [None]
  - COLD SWEAT [None]
  - COUGH [None]
  - FEBRILE NEUTROPENIA [None]
  - HAEMATOCRIT DECREASED [None]
  - HAEMOGLOBIN DECREASED [None]
  - LYMPHADENOPATHY [None]
  - NEUTROPHIL COUNT DECREASED [None]
  - ORAL CANDIDIASIS [None]
  - PAIN [None]
  - PHARYNGEAL ABSCESS [None]
  - PHARYNGITIS [None]
  - PLATELET COUNT DECREASED [None]
  - PNEUMONIA [None]
  - RALES [None]
  - RED BLOOD CELL COUNT DECREASED [None]
  - RESPIRATORY RATE INCREASED [None]
  - SEPTIC SHOCK [None]
  - STRIDOR [None]
  - SUBMANDIBULAR MASS [None]
  - TONSILLITIS [None]
  - UPPER AIRWAY OBSTRUCTION [None]
  - WHEEZING [None]
  - WHITE BLOOD CELL COUNT DECREASED [None]
